FAERS Safety Report 4498430-5 (Version None)
Quarter: 2004Q4

REPORT INFORMATION
  Report Type: 
  Country: None (occurrence: None)
  Receive Date: 20041105
  Receipt Date: 20041020
  Transmission Date: 20050328
  Serious: Yes (Death)
  Sender: FDA-Public Use
  Company Number: DSA_25231_2004

PATIENT
  Age: 51 Year
  Sex: Female

DRUGS (5)
  1. ATIVAN [Suspect]
     Dosage: DF
  2. ALCOHOL [Suspect]
     Dosage: DF
  3. MIRTAZAPINE [Suspect]
     Dosage: DF
  4. ZOPICLONE [Suspect]
     Dosage: DF
  5. CHLORPROMAZINE [Concomitant]

REACTIONS (2)
  - DRUG LEVEL INCREASED [None]
  - SUDDEN DEATH [None]
